FAERS Safety Report 16191828 (Version 1)
Quarter: 2019Q2

REPORT INFORMATION
  Report Type: Spontaneous
  Country: BR (occurrence: BR)
  Receive Date: 20190412
  Receipt Date: 20190412
  Transmission Date: 20190711
  Serious: Yes (Other)
  Sender: FDA-Public Use
  Company Number: BR-NOVOPROD-656800

PATIENT
  Age: 45 Year
  Sex: Female
  Weight: 97 kg

DRUGS (1)
  1. SAXENDA [Suspect]
     Active Substance: LIRAGLUTIDE
     Indication: WEIGHT CONTROL
     Dosage: 3 MG
     Route: 065
     Dates: start: 201807, end: 201810

REACTIONS (3)
  - Exposure during pregnancy [Recovered/Resolved]
  - Product use issue [Unknown]
  - Abortion [Recovered/Resolved]

NARRATIVE: CASE EVENT DATE: 201810
